FAERS Safety Report 5252135-1 (Version None)
Quarter: 2007Q1

REPORT INFORMATION
  Report Type: 
  Country: None (occurrence: None)
  Receive Date: 20070227
  Receipt Date: 20070214
  Transmission Date: 20070707
  Serious: Yes (Other)
  Sender: FDA-Public Use
  Company Number: CHNY2007JP00955

PATIENT
  Age: 1 Year
  Sex: Female

DRUGS (5)
  1. CLEMASTINE FUMARATE [Suspect]
     Indication: SINUSITIS
     Dates: start: 20070205, end: 20070206
  2. CLEMASTINE FUMARATE [Suspect]
     Indication: SINUSITIS
     Dates: start: 20061201
  3. MEIACT (CEFDITOREN PIVOXIL) [Concomitant]
  4. ASVERIN (TIPEPIDINE HIBENZATE) [Concomitant]
  5. MUCOSAL (AMBROXOL HYDROCHLORIDE) [Concomitant]

REACTIONS (2)
  - CONFUSIONAL STATE [None]
  - SIMILAR REACTION ON PREVIOUS EXPOSURE TO DRUG [None]
